FAERS Safety Report 21817074 (Version 1)
Quarter: 2023Q1

REPORT INFORMATION
  Report Type: Other
  Country: US (occurrence: US)
  Receive Date: 20230104
  Receipt Date: 20230104
  Transmission Date: 20230417
  Serious: Yes (Other)
  Sender: FDA-Public Use
  Company Number: US-GLENMARK PHARMACEUTICALS-2023GMK077528

PATIENT

DRUGS (1)
  1. OMEPRAZOLE [Suspect]
     Active Substance: OMEPRAZOLE
     Indication: Product used for unknown indication
     Dosage: UNK
     Route: 065
     Dates: start: 20220906, end: 2022

REACTIONS (4)
  - Suspected transmission of an infectious agent via product [Unknown]
  - Kidney infection [Unknown]
  - Product contamination microbial [Unknown]
  - Cystitis [Unknown]

NARRATIVE: CASE EVENT DATE: 20220101
